FAERS Safety Report 11680292 (Version 2)
Quarter: 2015Q4

REPORT INFORMATION
  Report Type: Spontaneous
  Country: US (occurrence: US)
  Receive Date: 20151027
  Receipt Date: 20151104
  Transmission Date: 20160304
  Serious: No
  Sender: FDA-Public Use
  Company Number: US-ELI_LILLY_AND_COMPANY-US201007000126

PATIENT
  Age: 63 Year
  Sex: Female
  Weight: 47.53 kg

DRUGS (6)
  1. FORTEO [Suspect]
     Active Substance: TERIPARATIDE
     Dosage: 20 UG, DAILY (1/D)
     Route: 065
  2. ARIMIDEX [Concomitant]
     Active Substance: ANASTROZOLE
     Dosage: UNK
     Dates: start: 200905
  3. FORTEO [Suspect]
     Active Substance: TERIPARATIDE
     Dosage: 20 UG, QD
     Route: 065
  4. FORTEO [Suspect]
     Active Substance: TERIPARATIDE
     Indication: OSTEOPOROSIS
     Dosage: 20 UG, DAILY (1/D)
     Route: 065
     Dates: start: 20100625
  5. CALCIUM [Concomitant]
     Active Substance: CALCIUM
  6. CALCIUM W/VITAMIN D                /00188401/ [Concomitant]

REACTIONS (7)
  - Carcinoembryonic antigen increased [Unknown]
  - Headache [Unknown]
  - Foot fracture [Unknown]
  - Cataract operation [Unknown]
  - Blood calcium increased [Not Recovered/Not Resolved]
  - Injection site bruising [Recovering/Resolving]
  - Injection site pain [Unknown]

NARRATIVE: CASE EVENT DATE: 20100627
